FAERS Safety Report 8812681 (Version 1)
Quarter: 2012Q4

REPORT INFORMATION
  Report Type: 
  Country: US (occurrence: US)
  Receive Date: 20120927
  Receipt Date: 20120927
  Transmission Date: 20130627
  Serious: Yes (Other)
  Sender: FDA-Public Use
  Company Number: US-FRI-1000038731

PATIENT
  Age: 65 Year
  Sex: Male

DRUGS (3)
  1. VIIBRYD [Suspect]
     Indication: DEPRESSION
     Dates: start: 201208, end: 2012
  2. VIIBRYD [Suspect]
     Indication: AGITATION
  3. BLOOD PRESSURE MEDICATIONS NOS [Concomitant]
     Indication: HYPERTENSION

REACTIONS (2)
  - Suicidal ideation [Unknown]
  - Feeling abnormal [Unknown]
